FAERS Safety Report 10453172 (Version 1)
Quarter: 2014Q3

REPORT INFORMATION
  Report Type: Spontaneous
  Country: NO (occurrence: NO)
  Receive Date: 20140915
  Receipt Date: 20140915
  Transmission Date: 20150326
  Serious: Yes (Disabling)
  Sender: FDA-Public Use
  Company Number: NO-GLAXOSMITHKLINE-B1032924A

PATIENT
  Age: 35 Year
  Sex: Male

DRUGS (4)
  1. LAMICTAL [Suspect]
     Active Substance: LAMOTRIGINE
     Indication: BIPOLAR II DISORDER
     Route: 065
     Dates: start: 20110808, end: 201112
  2. TOLVON [Concomitant]
     Active Substance: MIANSERIN
     Dosage: 30MG PER DAY
     Dates: start: 20100901, end: 20100913
  3. VENTOLIN [Concomitant]
     Active Substance: ALBUTEROL SULFATE
     Route: 055
     Dates: start: 1988
  4. CIPRAMIL [Concomitant]
     Active Substance: CITALOPRAM HYDROBROMIDE
     Dates: start: 20100913, end: 201108

REACTIONS (7)
  - Thinking abnormal [Not Recovered/Not Resolved]
  - Paraesthesia [Recovering/Resolving]
  - Suicidal ideation [Not Recovered/Not Resolved]
  - Anger [Recovering/Resolving]
  - Hallucination, auditory [Not Recovered/Not Resolved]
  - Fatigue [Recovering/Resolving]
  - Anxiety [Recovering/Resolving]

NARRATIVE: CASE EVENT DATE: 201108
